FAERS Safety Report 25133410 (Version 2)
Quarter: 2025Q2

REPORT INFORMATION
  Report Type: Spontaneous
  Country: US (occurrence: US)
  Receive Date: 20250328
  Receipt Date: 20250616
  Transmission Date: 20250717
  Serious: No
  Sender: SANOFI AVENTIS
  Company Number: US-SA-2025SA089881

PATIENT
  Sex: Female
  Weight: 95 kg

DRUGS (12)
  1. DUPIXENT [Suspect]
     Active Substance: DUPILUMAB
     Indication: Eczema
     Dosage: 300 MG, QOW
     Route: 058
     Dates: start: 20250204, end: 20250428
  2. HYDROXYZINE HYDROCHLORIDE [Concomitant]
     Active Substance: HYDROXYZINE HYDROCHLORIDE
     Route: 048
  3. VITAMIN C [Concomitant]
     Active Substance: ASCORBIC ACID
  4. VENTOLIN HFA [Concomitant]
     Active Substance: ALBUTEROL SULFATE
  5. PIMECROLIMUS [Concomitant]
     Active Substance: PIMECROLIMUS
     Dosage: QD
  6. TRIAMCINOLONE ACETONIDE [Concomitant]
     Active Substance: TRIAMCINOLONE ACETONIDE
  7. BETAMETHASONE [Concomitant]
     Active Substance: BETAMETHASONE
     Dosage: BID
     Dates: start: 20250204
  8. ADBRY [Concomitant]
     Active Substance: TRALOKINUMAB-LDRM
     Dosage: 300.000MG QOW
     Dates: start: 20250409
  9. HYDROCORTISONE [Concomitant]
     Active Substance: HYDROCORTISONE
  10. EPINEPHRINE [Concomitant]
     Active Substance: EPINEPHRINE
     Route: 030
  11. VITAMIN D [Concomitant]
     Active Substance: VITAMIN D NOS
  12. TACROLIMUS [Concomitant]
     Active Substance: TACROLIMUS
     Dosage: BID

REACTIONS (6)
  - Urticaria [Not Recovered/Not Resolved]
  - Headache [Not Recovered/Not Resolved]
  - Pruritus [Not Recovered/Not Resolved]
  - Drug ineffective [Unknown]
  - Dermatitis atopic [Unknown]
  - Dermal cyst [Unknown]
